FAERS Safety Report 8785682 (Version 1)
Quarter: 2012Q4

REPORT INFORMATION
  Report Type: 
  Country: TH (occurrence: TH)
  Receive Date: 20120914
  Receipt Date: 20120914
  Transmission Date: 20130627
  Serious: Yes (Hospitalization)
  Sender: FDA-Public Use
  Company Number: TH-SANOFI-AVENTIS-2012SA064844

PATIENT
  Age: 56 Year
  Sex: Female

DRUGS (2)
  1. TAXOTERE [Suspect]
     Indication: ADENOCARCINOMA OF COLON
     Route: 042
     Dates: start: 20100106, end: 20100106
  2. TAXOTERE [Suspect]
     Indication: ADENOCARCINOMA OF COLON
     Route: 065

REACTIONS (2)
  - Neuropathy peripheral [Unknown]
  - Petechiae [Unknown]
